FAERS Safety Report 23371349 (Version 5)
Quarter: 2024Q1

REPORT INFORMATION
  Report Type: Spontaneous
  Country: US (occurrence: US)
  Receive Date: 20240105
  Receipt Date: 20240129
  Transmission Date: 20240410
  Serious: No
  Sender: FDA-Public Use
  Company Number: US-PFIZER INC-PV202300209880

PATIENT
  Age: 82 Year
  Sex: Male
  Weight: 72 kg

DRUGS (2)
  1. LORBRENA [Suspect]
     Active Substance: LORLATINIB
     Indication: Lung neoplasm malignant
     Dosage: INSTRUCTIONS: SWALLOW WHOLE
     Route: 048
  2. LORBRENA [Suspect]
     Active Substance: LORLATINIB
     Dosage: 3 TAB (3X25MG), ORAL, DAILY
     Route: 048

REACTIONS (2)
  - Dyspnoea [Unknown]
  - Anaemia [Unknown]
